FAERS Safety Report 9337208 (Version 2)
Quarter: 2013Q3

REPORT INFORMATION
  Report Type: Spontaneous
  Country: FI (occurrence: FI)
  Receive Date: 20130607
  Receipt Date: 20130719
  Transmission Date: 20140515
  Serious: Yes (Hospitalization)
  Sender: FDA-Public Use
  Company Number: FI-AMGEN-FINSP2013040409

PATIENT
  Age: 46 Year
  Sex: Male
  Weight: 72 kg

DRUGS (5)
  1. ENBREL [Suspect]
     Indication: PSORIATIC ARTHROPATHY
     Dosage: 50 MG, WEEKLY
     Route: 058
     Dates: start: 20130314, end: 20130412
  2. TREXAN                             /00113801/ [Concomitant]
     Indication: PSORIATIC ARTHROPATHY
     Dosage: 7.5 MG, WEEKLY
     Route: 048
     Dates: start: 20080401, end: 201304
  3. TREXAN                             /00113801/ [Concomitant]
     Dosage: 10 MG, WEEKLY
     Dates: start: 201304
  4. VALACICLOVIR ACTAVIS [Concomitant]
     Indication: PROPHYLAXIS
     Dosage: 500 MG, 2X/DAY
     Route: 048
     Dates: start: 20130314
  5. FOLIC ACID [Concomitant]
     Dosage: UNK

REACTIONS (12)
  - Peripheral coldness [Not Recovered/Not Resolved]
  - Pain in extremity [Not Recovered/Not Resolved]
  - Peripheral vascular disorder [Not Recovered/Not Resolved]
  - Cyanosis [Not Recovered/Not Resolved]
  - Thrombosis [Not Recovered/Not Resolved]
  - Coagulation factor VIII level increased [Unknown]
  - Arthropathy [Unknown]
  - Musculoskeletal stiffness [Unknown]
  - Joint swelling [Unknown]
  - Joint range of motion decreased [Unknown]
  - Tenderness [Unknown]
  - Joint effusion [Unknown]
